FAERS Safety Report 13825776 (Version 6)
Quarter: 2018Q4

REPORT INFORMATION
  Report Type: Report from Study
  Country: US (occurrence: US)
  Receive Date: 20170802
  Receipt Date: 20181231
  Transmission Date: 20190204
  Serious: Yes (Death, Hospitalization)
  Sender: FDA-Public Use
  Company Number: US-ACTELION-A-NJ2017-157428

PATIENT
  Age: 58 Year
  Sex: Female

DRUGS (11)
  1. OPSUMIT [Suspect]
     Active Substance: MACITENTAN
     Indication: PULMONARY ARTERIAL HYPERTENSION
     Dosage: 10 MG, QD
     Route: 048
     Dates: start: 20170501
  2. PLAVIX [Concomitant]
     Active Substance: CLOPIDOGREL BISULFATE
     Dosage: 75 MG, QD
  3. NICOTINE. [Concomitant]
     Active Substance: NICOTINE
     Dosage: 7 MG/24 HR
  4. ALDACTONE [Concomitant]
     Active Substance: SPIRONOLACTONE
     Dosage: 25 MG, QD
  5. REQUIP [Concomitant]
     Active Substance: ROPINIROLE HYDROCHLORIDE
     Dosage: 1 MG, QID
  6. PROTONIX [Concomitant]
     Active Substance: PANTOPRAZOLE SODIUM
     Dosage: 40 MG, QD
  7. ATORVASTATIN [Concomitant]
     Active Substance: ATORVASTATIN
     Dosage: 10 MG, QD
  8. GABAPENTIN. [Concomitant]
     Active Substance: GABAPENTIN
     Dosage: 600 MG, QD
  9. METOPROLOL TARTRATE. [Concomitant]
     Active Substance: METOPROLOL TARTRATE
     Dosage: 25 MG, BID
  10. PEPCID [Concomitant]
     Active Substance: FAMOTIDINE
     Dosage: 40 MG, QD
  11. OPSUMIT [Suspect]
     Active Substance: MACITENTAN
     Dosage: UNK, BID
     Route: 048
     Dates: start: 20180608

REACTIONS (12)
  - Death [Fatal]
  - Pneumonia [Unknown]
  - Hypercapnia [Unknown]
  - Dyspnoea [Unknown]
  - Acute respiratory failure [Unknown]
  - Fall [Unknown]
  - Chronic obstructive pulmonary disease [Unknown]
  - Oxygen saturation decreased [Unknown]
  - Chest pain [Unknown]
  - Atypical pneumonia [Unknown]
  - Bronchitis [Unknown]
  - Bone pain [Unknown]
